FAERS Safety Report 9637945 (Version 1)
Quarter: 2013Q4

REPORT INFORMATION
  Report Type: Spontaneous
  Country: BR (occurrence: BR)
  Receive Date: 20131022
  Receipt Date: 20131022
  Transmission Date: 20140711
  Serious: Yes (Other)
  Sender: FDA-Public Use
  Company Number: BR-ELI_LILLY_AND_COMPANY-BR201310003536

PATIENT
  Sex: Female

DRUGS (4)
  1. HUMULIN N [Suspect]
     Dosage: 18 IU, EACH MORNING
     Route: 065
  2. HUMULIN N [Suspect]
     Dosage: 8 IU, QD
     Route: 065
  3. HUMULIN N [Suspect]
     Dosage: 6 IU, EACH EVENING
     Route: 065
  4. HUMULIN R [Suspect]
     Dosage: UNK, UNKNOWN
     Route: 065

REACTIONS (1)
  - Blood glucose increased [Recovered/Resolved]
